FAERS Safety Report 9267584 (Version 1)
Quarter: 2013Q2

REPORT INFORMATION
  Report Type: Spontaneous
  Country: US (occurrence: US)
  Receive Date: 20130502
  Receipt Date: 20130502
  Transmission Date: 20140414
  Serious: Yes (Hospitalization)
  Sender: FDA-Public Use
  Company Number: US-ALEXION-A201200721

PATIENT
  Age: 61 Year
  Sex: Male
  Weight: 81.63 kg

DRUGS (3)
  1. SOLIRIS 300MG [Suspect]
     Indication: PAROXYSMAL NOCTURNAL HAEMOGLOBINURIA
     Dosage: 900 MG, Q2W
     Route: 042
  2. COUMADIN [Concomitant]
     Indication: PRODUCT USED FOR UNKNOWN INDICATION
     Dosage: UNK
     Route: 065
     Dates: end: 201204
  3. LACTULOSE [Concomitant]
     Dosage: 30 GRAMS, 5 TIMES PER DAY
     Route: 048

REACTIONS (2)
  - Ammonia increased [Recovered/Resolved]
  - Abdominal pain [Recovered/Resolved]
